FAERS Safety Report 18532277 (Version 1)
Quarter: 2020Q4

REPORT INFORMATION
  Report Type: Spontaneous
  Country: DE (occurrence: DE)
  Receive Date: 20201123
  Receipt Date: 20201123
  Transmission Date: 20210114
  Serious: Yes (Other)
  Sender: FDA-Public Use
  Company Number: DE-AUROBINDO-AUR-APL-2020-057326

PATIENT

DRUGS (16)
  1. METHOTREXATE. [Suspect]
     Active Substance: METHOTREXATE
     Dosage: 4000 MILLIGRAM/SQ. METER, (EVERY 2 WEEKS (CYCLE 5, DAY 1)
     Route: 042
  2. PREDNISOLONE. [Suspect]
     Active Substance: PREDNISOLONE
     Dosage: 3 MILLIGRAM (EVERY 2 WEEKS (CYCLE 5, DAY 2-4) WITH METHOTREXATE)
     Route: 065
  3. GRANULOCYTE COLONY STIMULATING FACTOR [Suspect]
     Active Substance: GRANULOCYTE COLONY-STIMULATING FACTOR NOS
     Indication: PROPHYLAXIS
     Dosage: UNK (AT EACH CYCLE)
     Route: 065
  4. METHOTREXATE. [Suspect]
     Active Substance: METHOTREXATE
     Indication: CENTRAL NERVOUS SYSTEM LYMPHOMA
     Dosage: 2.5 MILLIGRAM, (EVERY 3 WEEKS (CYCLE 4 + 6, DAY 3-5)
     Route: 065
  5. MESNA. [Suspect]
     Active Substance: MESNA
     Indication: DRUG TOXICITY PROPHYLAXIS
     Dosage: UNK, (ADMINISTERED WITH IFOSFAMIDE AS PROTECTION)
     Route: 065
  6. ACICLOVIR [Suspect]
     Active Substance: ACYCLOVIR
     Indication: PROPHYLAXIS
     Dosage: UNK (AT EACH CYCLE)
     Route: 065
  7. IFOSFAMIDE. [Suspect]
     Active Substance: IFOSFAMIDE
     Indication: CENTRAL NERVOUS SYSTEM LYMPHOMA
     Dosage: 800 MILLIGRAM/SQ. METER, (EVERY 2 WEEKS (CYCLE 5, DAY 2-4)
     Route: 042
  8. METHOTREXATE. [Suspect]
     Active Substance: METHOTREXATE
     Dosage: 4000 MILLIGRAM/SQ. METER, (EVERY 2 WEEKS (CYCLE 1-3, DAY 1)
     Route: 042
  9. RITUXIMAB. [Suspect]
     Active Substance: RITUXIMAB
     Indication: CENTRAL NERVOUS SYSTEM LYMPHOMA
     Dosage: 375 MILLIGRAM/SQ. METER (EVERY 2 WEEKS (CYCLE 1-3, DAY 0)
     Route: 042
  10. ARA-C [Suspect]
     Active Substance: CYTARABINE
     Dosage: 10  MILLIGRAM (EVERY 3 WEEKS (CYCLE 4 + 6, DAY 6)
     Route: 065
  11. PREDNISOLONE. [Suspect]
     Active Substance: PREDNISOLONE
     Indication: CENTRAL NERVOUS SYSTEM LYMPHOMA
     Dosage: 3 MILLIGRAM (ICV, EVERY 3 WEEKS (CYCLE 4 + 6, DAY 3-5) WITH METHOTREXATE)
     Route: 065
  12. SULFAMETHOXAZOLE;TRIMETHOPRIM [Suspect]
     Active Substance: SULFAMETHOXAZOLE\TRIMETHOPRIM
     Indication: PROPHYLAXIS
     Dosage: UNK (AT EACH CYCLE)
     Route: 065
  13. ARA-C [Suspect]
     Active Substance: CYTARABINE
     Dosage: 3000 MILLIGRAM/SQ. METER (EVERY 3 WEEKS (CYCLE 4 + 6, DAY 1-2)
     Route: 042
  14. IFOSFAMIDE. [Suspect]
     Active Substance: IFOSFAMIDE
     Dosage: 800 MILLIGRAM/SQ. METER, (EVERY 2 WEEKS (CYCLE 1-3, DAY 2-4)
     Route: 042
  15. METHOTREXATE. [Suspect]
     Active Substance: METHOTREXATE
     Dosage: 2.5 MILLIGRAM, (EVERY 2 WEEKS (CYCLE 5, DAY 2-4 (WITH PREDNISOLONE)
     Route: 065
  16. ARA-C [Suspect]
     Active Substance: CYTARABINE
     Indication: CENTRAL NERVOUS SYSTEM LYMPHOMA
     Dosage: 10 MILLIGRAM, (EVERY 2 WEEKS (CYCLE 5, DAY 5)
     Route: 065

REACTIONS (2)
  - Disease progression [Unknown]
  - Central nervous system lymphoma [Unknown]
